FAERS Safety Report 12839558 (Version 1)
Quarter: 2016Q4

REPORT INFORMATION
  Report Type: Spontaneous
  Country: JP (occurrence: JP)
  Receive Date: 20161012
  Receipt Date: 20161012
  Transmission Date: 20170207
  Serious: Yes (Hospitalization, Other)
  Sender: FDA-Public Use
  Company Number: JP-GLAXOSMITHKLINE-JP2016JPN127094

PATIENT
  Age: 87 Year
  Sex: Female

DRUGS (12)
  1. MECOBALAMIN [Concomitant]
     Active Substance: METHYLCOBALAMIN
     Dosage: UNK
  2. TRAZENTA [Concomitant]
     Active Substance: LINAGLIPTIN
     Dosage: UNK
  3. VALTREX [Suspect]
     Active Substance: VALACYCLOVIR HYDROCHLORIDE
     Indication: HERPES ZOSTER
     Dosage: 1000 MG, TID
     Route: 048
     Dates: start: 20160827, end: 20160829
  4. BUFFERIN [Concomitant]
     Active Substance: ASPIRIN
     Dosage: UNK
  5. LIXIANA [Concomitant]
     Active Substance: EDOXABAN TOSILATE MONOHYDRATE
     Dosage: UNK
  6. MAGMITT [Concomitant]
     Active Substance: MAGNESIUM OXIDE
     Dosage: UNK
  7. SELBEX [Concomitant]
     Active Substance: TEPRENONE
     Dosage: UNK
  8. NEUROTROPIN (JAPAN) [Concomitant]
     Dosage: UNK
  9. BIO-THREE [Concomitant]
     Active Substance: HERBALS
     Dosage: UNK
  10. EDIROL [Concomitant]
     Active Substance: ELDECALCITOL
     Dosage: 1 DF, QD
  11. AMLODIN [Concomitant]
     Active Substance: AMLODIPINE BESYLATE
     Dosage: UNK
  12. RHEUMATREX [Concomitant]
     Active Substance: METHOTREXATE SODIUM
     Dosage: UNK

REACTIONS (4)
  - Somnolence [Unknown]
  - Altered state of consciousness [Recovered/Resolved]
  - Muscular weakness [Unknown]
  - Toxic encephalopathy [Unknown]

NARRATIVE: CASE EVENT DATE: 201608
